FAERS Safety Report 7214668-8 (Version None)
Quarter: 2010Q4

REPORT INFORMATION
  Report Type: 
  Country: None (occurrence: None)
  Receive Date: 20101126
  Receipt Date: 20101013
  Transmission Date: 20110411
  Serious: Yes (Hospitalization, Other)
  Sender: FDA-Public Use
  Company Number: CIP08001646

PATIENT
  Age: 72 Year
  Sex: Female

DRUGS (16)
  1. ACTONEL [Suspect]
     Indication: OSTEOPENIA
     Dosage: 35 MG ONCE WEEKLY, ORAL
     Route: 048
     Dates: start: 20030511, end: 20060807
  2. FOSAMAX [Suspect]
     Indication: OSTEOPENIA
     Dosage: 35 MG ORAL
     Route: 048
     Dates: start: 20010607, end: 20011128
  3. FOSAMAX [Suspect]
     Indication: OSTEOPENIA
     Dosage: 35 MG ORAL
     Route: 048
     Dates: start: 20020726, end: 20021001
  4. PROCARDIA [Concomitant]
  5. GLUCOPHAGE /00082701/(METFORMIN) [Concomitant]
  6. MICRONASE [Concomitant]
  7. ENAPRIL /00574901/ (ENALAPRIL) [Concomitant]
  8. LIPITOR [Concomitant]
  9. ACCUPRIL [Concomitant]
  10. ASPIRIN [Concomitant]
  11. ACTOS [Concomitant]
  12. CENTRUM SILVER /01292501/ (ASCORBIC ACID, CALCIUM, MINERALS NOS, RETIN [Concomitant]
  13. CALCIUM PLUS D3 (CALCIUM, COLECALCIFEROL) [Concomitant]
  14. VITAMIN E /00110501/ (TOCOPHEROL) [Concomitant]
  15. ZOCOR [Concomitant]
  16. METAMUCIL /00091301/ (PSYLLIUM HYDROPHILIC MUCILLOID) [Concomitant]

REACTIONS (10)
  - BONE EROSION [None]
  - DEVICE FAILURE [None]
  - GINGIVAL DISORDER [None]
  - GINGIVAL PAIN [None]
  - GINGIVAL RECESSION [None]
  - OSTEONECROSIS OF JAW [None]
  - PAIN IN JAW [None]
  - PERIODONTITIS [None]
  - RADICULAR CYST [None]
  - TOOTHACHE [None]
